FAERS Safety Report 5334931-5 (Version None)
Quarter: 2007Q2

REPORT INFORMATION
  Report Type: 
  Country: None (occurrence: None)
  Receive Date: 20070525
  Receipt Date: 20070523
  Transmission Date: 20071010
  Serious: Yes (Life-Threatening, Hospitalization)
  Sender: FDA-Public Use
  Company Number: JP-BRISTOL-MYERS SQUIBB COMPANY-13758743

PATIENT
  Age: 67 Year
  Sex: Female

DRUGS (6)
  1. TAXOL [Suspect]
     Indication: UTERINE CANCER
     Route: 041
     Dates: start: 20060608, end: 20060608
  2. PARAPLATIN [Suspect]
     Indication: UTERINE CANCER
     Route: 041
     Dates: start: 20060608, end: 20060608
  3. DEXAMETHASONE SODIUM PHOSPHATE [Concomitant]
     Route: 042
     Dates: start: 20060608
  4. DIPHENHYDRAMINE HCL [Concomitant]
     Route: 042
     Dates: start: 20060608
  5. ZANTAC [Concomitant]
     Route: 042
     Dates: start: 20060608
  6. MAXIPIME [Concomitant]
     Route: 042
     Dates: start: 20060623, end: 20060626

REACTIONS (4)
  - HAEMOGLOBIN DECREASED [None]
  - NEUTROPHIL COUNT DECREASED [None]
  - PELVIC ABSCESS [None]
  - WHITE BLOOD CELL COUNT DECREASED [None]
